FAERS Safety Report 8163372-0 (Version None)
Quarter: 2012Q1

REPORT INFORMATION
  Report Type: 
  Country: None (occurrence: None)
  Receive Date: 20120224
  Receipt Date: 20120220
  Transmission Date: 20120608
  Serious: Yes (Other)
  Sender: FDA-Public Use
  Company Number: US-BAYER-2012-016892

PATIENT
  Age: 24 Year
  Sex: Female

DRUGS (5)
  1. FIORICET [Concomitant]
     Dosage: UNK
  2. CELEXA [Concomitant]
  3. TOPAMAX [Concomitant]
  4. XANAX [Concomitant]
  5. MIRENA [Suspect]
     Indication: MIGRAINE
     Dosage: UNK
     Route: 015
     Dates: start: 20090101, end: 20120214

REACTIONS (3)
  - VAGINAL HAEMORRHAGE [None]
  - ABDOMINAL PAIN [None]
  - UTERINE PAIN [None]
